FAERS Safety Report 14992367 (Version 2)
Quarter: 2018Q2

REPORT INFORMATION
  Report Type: Spontaneous
  Country: GB (occurrence: GB)
  Receive Date: 20180609
  Receipt Date: 20180627
  Transmission Date: 20180711
  Serious: Yes (Other)
  Sender: FDA-Public Use
  Company Number: GB-TEVA-2018-GB-903388

PATIENT
  Age: 68 Year
  Sex: Female
  Weight: 86.8 kg

DRUGS (6)
  1. PEMETREXED. [Suspect]
     Active Substance: PEMETREXED
     Indication: PRODUCT USED FOR UNKNOWN INDICATION
  2. CARBOPLATIN. [Suspect]
     Active Substance: CARBOPLATIN
     Indication: PRODUCT USED FOR UNKNOWN INDICATION
     Dosage: 13/06/2017, 04/07/2017, 25/07/2017 AND 22/08/2017
     Route: 065
     Dates: start: 20170613, end: 20170822
  3. CARBOPLATIN. [Suspect]
     Active Substance: CARBOPLATIN
     Route: 005
     Dates: start: 20170725, end: 20170822
  4. DENOSUMAB [Suspect]
     Active Substance: DENOSUMAB
     Route: 065
     Dates: start: 20170808, end: 20170915
  5. DENOSUMAB [Suspect]
     Active Substance: DENOSUMAB
     Indication: METASTASES TO BONE
     Dosage: 7/072017, 18/08/2018, 15/09/2017
     Route: 042
     Dates: start: 20170526, end: 20170915
  6. DENOSUMAB [Suspect]
     Active Substance: DENOSUMAB
     Route: 058
     Dates: start: 20170707

REACTIONS (1)
  - Renal impairment [Not Recovered/Not Resolved]

NARRATIVE: CASE EVENT DATE: 20170721
